FAERS Safety Report 13712997 (Version 3)
Quarter: 2017Q3

REPORT INFORMATION
  Report Type: Spontaneous
  Country: DE (occurrence: DE)
  Receive Date: 20170704
  Receipt Date: 20170817
  Transmission Date: 20171127
  Serious: Yes (Other)
  Sender: FDA-Public Use
  Company Number: PHHY2017DE095643

PATIENT
  Age: 22 Year
  Sex: Female
  Weight: 58 kg

DRUGS (2)
  1. DESOFEMONO [Concomitant]
     Indication: ORAL CONTRACEPTION
     Route: 048
     Dates: start: 201602
  2. GILENYA [Suspect]
     Active Substance: FINGOLIMOD HYDROCHLORIDE
     Indication: MULTIPLE SCLEROSIS
     Dosage: 5 MG, QD
     Route: 048
     Dates: start: 201602

REACTIONS (2)
  - Eyelid cyst [Recovered/Resolved]
  - Dermal cyst [Recovered/Resolved]

NARRATIVE: CASE EVENT DATE: 201612
